FAERS Safety Report 15682197 (Version 1)
Quarter: 2018Q4

REPORT INFORMATION
  Report Type: Spontaneous
  Country: CZ (occurrence: CZ)
  Receive Date: 20181203
  Receipt Date: 20181203
  Transmission Date: 20190205
  Serious: Yes (Other)
  Sender: FDA-Public Use
  Company Number: CZ-IMPAX LABORATORIES, LLC-2018-IPXL-03966

PATIENT
  Age: 73 Year
  Sex: Male

DRUGS (1)
  1. CABERGOLINE. [Suspect]
     Active Substance: CABERGOLINE
     Dosage: 0.5 MILLIGRAM, DAILY
     Route: 065

REACTIONS (1)
  - Cerebrospinal fluid leakage [Recovered/Resolved]
